FAERS Safety Report 5901768-5 (Version None)
Quarter: 2008Q3

REPORT INFORMATION
  Report Type: 
  Country: None (occurrence: None)
  Receive Date: 20080926
  Receipt Date: 20080926
  Transmission Date: 20090109
  Serious: Yes (Hospitalization, Other)
  Sender: FDA-Public Use
  Company Number: None

PATIENT
  Sex: Female
  Weight: 4.27 kg

DRUGS (1)
  1. PREDNISOLONE [Suspect]
     Indication: HAEMANGIOMA
     Dosage: 4.5 MG BID PO
     Route: 048
     Dates: start: 20080626, end: 20080901

REACTIONS (2)
  - BENIGN INTRACRANIAL HYPERTENSION [None]
  - FONTANELLE BULGING [None]
